FAERS Safety Report 13661998 (Version 4)
Quarter: 2017Q4

REPORT INFORMATION
  Report Type: Spontaneous
  Country: GB (occurrence: GB)
  Receive Date: 20170616
  Receipt Date: 20171025
  Transmission Date: 20180320
  Serious: Yes (Death, Other)
  Sender: FDA-Public Use
  Company Number: GB-PFIZER INC-2017226013

PATIENT
  Age: 49 Year
  Sex: Female

DRUGS (5)
  1. DOXORUBICIN [Suspect]
     Active Substance: DOXORUBICIN
     Indication: T-CELL LYMPHOMA REFRACTORY
     Dosage: UNK
     Dates: start: 20170328, end: 20170404
  2. VINCRISTINE SULFATE. [Suspect]
     Active Substance: VINCRISTINE SULFATE
     Indication: T-CELL LYMPHOMA REFRACTORY
     Dosage: UNK
     Dates: start: 20170328, end: 20170404
  3. CYCLOPHOSPHAMIDE. [Suspect]
     Active Substance: CYCLOPHOSPHAMIDE
     Indication: T-CELL LYMPHOMA REFRACTORY
     Dosage: UNK
     Dates: start: 20170328, end: 20170404
  4. METHYLPREDNISOLONE SODIUM SUCCINATE. [Suspect]
     Active Substance: METHYLPREDNISOLONE SODIUM SUCCINATE
     Indication: T-CELL LYMPHOMA REFRACTORY
     Dosage: 500 MG, UNK
     Route: 042
     Dates: start: 20170328, end: 20170402
  5. MEROPENEM. [Concomitant]
     Active Substance: MEROPENEM
     Indication: T-CELL LYMPHOMA REFRACTORY
     Dosage: UNK

REACTIONS (5)
  - Sepsis [Not Recovered/Not Resolved]
  - Rectal haemorrhage [Not Recovered/Not Resolved]
  - Renal failure [Not Recovered/Not Resolved]
  - Gastrointestinal haemorrhage [Fatal]
  - Cytopenia [Not Recovered/Not Resolved]

NARRATIVE: CASE EVENT DATE: 2017
